FAERS Safety Report 8553228 (Version 2)
Quarter: 2013Q2

REPORT INFORMATION
  Report Type: Spontaneous
  Country: US (occurrence: None)
  Receive Date: 20120327
  Receipt Date: 20120709
  Transmission Date: 20140414
  Serious: Yes (Other)
  Sender: FDA-Public Use
  Company Number: PHHY2011US25607

PATIENT
  Age: 64 Year
  Sex: 0

DRUGS (1)
  1. GLEEVEC [Suspect]
     Route: 048
     Dates: start: 20110302

REACTIONS (12)
  - OCCULT BLOOD POSITIVE [None]
  - PERIORBITAL OEDEMA [None]
  - DIARRHOEA [None]
  - ANAEMIA [None]
  - DYSGEUSIA [None]
  - FATIGUE [None]
  - DYSPNOEA [None]
  - Rash pruritic [None]
  - Visual impairment [None]
  - Thyroid disorder [None]
  - Skin disorder [None]
  - Alopecia [None]
